FAERS Safety Report 21612572 (Version 6)
Quarter: 2024Q2

REPORT INFORMATION
  Report Type: Report from Study
  Country: CN (occurrence: CN)
  Receive Date: 20221118
  Receipt Date: 20240401
  Transmission Date: 20240717
  Serious: No
  Sender: FDA-Public Use
  Company Number: CN-BoehringerIngelheim-2020-BI-050324

PATIENT
  Age: 60 Year
  Sex: Female
  Weight: 49 kg

DRUGS (1)
  1. AFATINIB DIMALEATE [Suspect]
     Active Substance: AFATINIB DIMALEATE
     Indication: Non-small cell lung cancer
     Route: 048
     Dates: start: 20200810

REACTIONS (7)
  - Nasal dryness [Recovered/Resolved]
  - Anaemia [Not Recovered/Not Resolved]
  - Dry mouth [Recovered/Resolved]
  - Dermatitis [Recovered/Resolved]
  - Mouth ulceration [Recovered/Resolved]
  - Dry skin [Recovered/Resolved]
  - Rash [Not Recovered/Not Resolved]

NARRATIVE: CASE EVENT DATE: 20200903
